FAERS Safety Report 7789642-3 (Version None)
Quarter: 2011Q3

REPORT INFORMATION
  Report Type: 
  Country: None (occurrence: None)
  Receive Date: 20110930
  Receipt Date: 20110920
  Transmission Date: 20111222
  Serious: Yes (Life-Threatening, Hospitalization)
  Sender: FDA-Public Use
  Company Number: CM-MERCK-1109USA01935

PATIENT
  Age: 41 Year
  Sex: Male

DRUGS (4)
  1. ALBENDAZOLE [Suspect]
     Indication: ONCHOCERCIASIS
     Route: 048
     Dates: start: 20110907
  2. STROMECTOL [Suspect]
     Indication: ONCHOCERCIASIS
     Route: 048
     Dates: start: 20110907
  3. STROMECTOL [Suspect]
     Indication: FILARIASIS LYMPHATIC
     Route: 048
     Dates: start: 20110907
  4. ALBENDAZOLE [Suspect]
     Indication: FILARIASIS LYMPHATIC
     Route: 048
     Dates: start: 20110907

REACTIONS (6)
  - DEPRESSED LEVEL OF CONSCIOUSNESS [None]
  - ENCEPHALOPATHY [None]
  - ASTHENIA [None]
  - DIARRHOEA [None]
  - COMA [None]
  - PYREXIA [None]
